FAERS Safety Report 21784337 (Version 1)
Quarter: 2022Q4

REPORT INFORMATION
  Report Type: Spontaneous
  Country: FR (occurrence: FR)
  Receive Date: 20221227
  Receipt Date: 20221227
  Transmission Date: 20230112
  Serious: Yes (Hospitalization, Other)
  Sender: FDA-Public Use
  Company Number: None

PATIENT
  Age: 38 Year
  Sex: Female

DRUGS (3)
  1. ALPRAZOLAM [Suspect]
     Active Substance: ALPRAZOLAM
     Indication: Product used for unknown indication
     Dosage: 26.25 MILLIGRAM, 1 TOTAL
     Route: 048
     Dates: start: 20211221, end: 20211221
  2. TRAMADOL [Suspect]
     Active Substance: TRAMADOL
     Indication: Product used for unknown indication
     Dosage: 1125 MILLIGRAM, 1 TOTAL
     Route: 048
     Dates: start: 20211221, end: 20211221
  3. ACETAMINOPHEN [Suspect]
     Active Substance: ACETAMINOPHEN
     Indication: Product used for unknown indication
     Dosage: 33 GRAM, 1 TOTAL
     Route: 048
     Dates: start: 20211221, end: 20211221

REACTIONS (7)
  - Rhabdomyolysis [Recovering/Resolving]
  - Hepatic cytolysis [Recovering/Resolving]
  - Altered state of consciousness [Recovered/Resolved]
  - Sinus bradycardia [Recovered/Resolved]
  - Hypothermia [Recovered/Resolved]
  - Vomiting [Recovered/Resolved]
  - Toxicity to various agents [Recovered/Resolved]

NARRATIVE: CASE EVENT DATE: 20211222
